FAERS Safety Report 9901320 (Version 4)
Quarter: 2014Q2

REPORT INFORMATION
  Report Type: Spontaneous
  Country: US (occurrence: US)
  Receive Date: 20140217
  Receipt Date: 20140402
  Transmission Date: 20141212
  Serious: Yes (Hospitalization, Other)
  Sender: FDA-Public Use
  Company Number: US-009507513-1202USA01301

PATIENT
  Sex: Male
  Weight: 77.98 kg

DRUGS (3)
  1. FOSAMAX [Suspect]
     Dosage: 10 MG, QD
     Route: 048
  2. FOSAMAX [Suspect]
     Route: 048
  3. ALENDRONATE SODIUM [Suspect]
     Dosage: 70 MG, QW

REACTIONS (12)
  - Femur fracture [Recovering/Resolving]
  - Open reduction of fracture [Unknown]
  - Intervertebral disc protrusion [Unknown]
  - Intramedullary rod insertion [Unknown]
  - Fall [Unknown]
  - Osteopenia [Unknown]
  - Osteoporosis [Unknown]
  - Pneumonia [Unknown]
  - Spinal osteoarthritis [Unknown]
  - Cough [Unknown]
  - Nasal congestion [Unknown]
  - Hypertension [Unknown]
